FAERS Safety Report 13823971 (Version 1)
Quarter: 2017Q3

REPORT INFORMATION
  Report Type: Report from Study
  Country: None (occurrence: CO)
  Receive Date: 20170802
  Receipt Date: 20170802
  Transmission Date: 20171127
  Serious: Yes (Hospitalization)
  Sender: FDA-Public Use
  Company Number: CO-ABBVIE-17K-036-2058324-00

PATIENT
  Age: 39 Year
  Sex: Female
  Weight: 62 kg

DRUGS (4)
  1. HUMIRA [Suspect]
     Active Substance: ADALIMUMAB
     Indication: RHEUMATOID ARTHRITIS
     Route: 058
     Dates: start: 20120725, end: 20170621
  2. METHOTREXATE (METHOTREXATE SODIUM) [Concomitant]
     Active Substance: METHOTREXATE SODIUM
     Indication: PRODUCT USED FOR UNKNOWN INDICATION
  3. PREDNISOLONE. [Concomitant]
     Active Substance: PREDNISOLONE
     Indication: PRODUCT USED FOR UNKNOWN INDICATION
  4. FOLIC ACID. [Concomitant]
     Active Substance: FOLIC ACID
     Indication: PRODUCT USED FOR UNKNOWN INDICATION

REACTIONS (1)
  - Uterine inflammation [Recovering/Resolving]

NARRATIVE: CASE EVENT DATE: 20170706
